FAERS Safety Report 4376692-2 (Version None)
Quarter: 2004Q2

REPORT INFORMATION
  Report Type: 
  Country: None (occurrence: None)
  Receive Date: 20040608
  Receipt Date: 20040526
  Transmission Date: 20050107
  Serious: Yes (Death, Hospitalization)
  Sender: FDA-Public Use
  Company Number: US-JNJFOC-20040600236

PATIENT
  Age: 68 Year
  Sex: Male

DRUGS (3)
  1. INFLIXIMAB (INFLIXIMAB, RECOMBINABNT LYOPHILIZED POWDER) [Suspect]
     Indication: CROHN'S DISEASE
     Dosage: 500 MG, INTRAVENOUS
     Route: 042
  2. PREDNISONE TAB [Concomitant]
  3. MYCOPHENOLATE MOFETIL (MYCOPHENOLATE MOFETIL) [Concomitant]

REACTIONS (8)
  - COUGH [None]
  - DYSPNOEA [None]
  - FATIGUE [None]
  - GLOMERULONEPHRITIS PROLIFERATIVE [None]
  - HYPOXIA [None]
  - LUNG NEOPLASM [None]
  - METASTATIC MALIGNANT MELANOMA [None]
  - WEIGHT DECREASED [None]
